FAERS Safety Report 8444627-9 (Version None)
Quarter: 2012Q2

REPORT INFORMATION
  Report Type: 
  Country: None (occurrence: None)
  Receive Date: 20120618
  Receipt Date: 20120612
  Transmission Date: 20120825
  Serious: Yes (Other)
  Sender: FDA-Public Use
  Company Number: JP-PFIZER INC-2012141715

PATIENT
  Age: 55 Year
  Sex: Female

DRUGS (2)
  1. ALDACTONE [Suspect]
     Dosage: UNK
     Route: 048
     Dates: start: 20120601
  2. ADALAT CC [Suspect]
     Dosage: UNK
     Route: 048
     Dates: start: 20120601

REACTIONS (2)
  - WHITE BLOOD CELL COUNT DECREASED [None]
  - PYREXIA [None]
